FAERS Safety Report 18286741 (Version 2)
Quarter: 2020Q3

REPORT INFORMATION
  Report Type: Report from Study
  Country: None (occurrence: US)
  Receive Date: 20200921
  Receipt Date: 20200929
  Transmission Date: 20201103
  Serious: Yes (Other)
  Sender: FDA-Public Use
  Company Number: US-ABBVIE-20K-163-3568355-00

PATIENT
  Sex: Female

DRUGS (1)
  1. HUMIRA [Suspect]
     Active Substance: ADALIMUMAB
     Indication: RHEUMATOID ARTHRITIS
     Dosage: CITRATE FREE
     Route: 058

REACTIONS (9)
  - Burning sensation [Recovering/Resolving]
  - Oropharyngeal pain [Not Recovered/Not Resolved]
  - Tremor [Recovering/Resolving]
  - Sensation of foreign body [Recovering/Resolving]
  - Oesophageal dilatation [Unknown]
  - Hypoaesthesia oral [Recovering/Resolving]
  - Scar excision [Unknown]
  - Feeling abnormal [Not Recovered/Not Resolved]
  - Dysphagia [Recovering/Resolving]
